FAERS Safety Report 6615126-1 (Version None)
Quarter: 2010Q1

REPORT INFORMATION
  Report Type: 
  Country: None (occurrence: None)
  Receive Date: 20100305
  Receipt Date: 20100222
  Transmission Date: 20100710
  Serious: Yes (Other)
  Sender: FDA-Public Use
  Company Number: HR-BRISTOL-MYERS SQUIBB COMPANY-14989032

PATIENT
  Age: 56 Year
  Sex: Male

DRUGS (2)
  1. SINEMET CR [Suspect]
     Indication: PARKINSON'S DISEASE
     Dosage: 1 DOSAGE FORM = 25-100 MG.
  2. VIAGRA [Interacting]

REACTIONS (3)
  - CHOREOATHETOSIS [None]
  - DRUG INTERACTION [None]
  - ERECTION INCREASED [None]
